FAERS Safety Report 22351783 (Version 1)
Quarter: 2023Q2

REPORT INFORMATION
  Report Type: Spontaneous
  Country: FR (occurrence: FR)
  Receive Date: 20230522
  Receipt Date: 20230522
  Transmission Date: 20230721
  Serious: Yes (Other)
  Sender: FDA-Public Use
  Company Number: FR-SUN PHARMACEUTICAL INDUSTRIES LTD-2023R1-387875

PATIENT
  Age: 80 Year
  Sex: Male

DRUGS (4)
  1. AZACITIDINE [Suspect]
     Active Substance: AZACITIDINE
     Indication: Blastic plasmacytoid dendritic cell neoplasia
     Dosage: 75 MILLIGRAM/SQ. METER, OD, 7D/CYCLE
  2. AZACITIDINE [Suspect]
     Active Substance: AZACITIDINE
     Dosage: REDUCED TO 5 DAY
  3. VENETOCLAX [Suspect]
     Active Substance: VENETOCLAX
     Indication: Blastic plasmacytoid dendritic cell neoplasia
     Dosage: 50-300 MILLIGRAM, 28 D / C
  4. VENETOCLAX [Suspect]
     Active Substance: VENETOCLAX
     Dosage: 200 MILLIGRAM, OD

REACTIONS (2)
  - Blood disorder [Not Recovered/Not Resolved]
  - Off label use [Unknown]
